FAERS Safety Report 25865875 (Version 1)
Quarter: 2025Q3

REPORT INFORMATION
  Report Type: Spontaneous
  Country: US (occurrence: US)
  Receive Date: 20250930
  Receipt Date: 20250930
  Transmission Date: 20251021
  Serious: No
  Sender: MALLINCKRODT
  Company Number: US-MALLINCKRODT-MNK202505884

PATIENT
  Age: 66 Year
  Sex: Female

DRUGS (1)
  1. CORTICOTROPIN [Suspect]
     Active Substance: CORTICOTROPIN
     Indication: Sarcoidosis
     Route: 058
     Dates: start: 202507

REACTIONS (2)
  - Epistaxis [Unknown]
  - Headache [Unknown]

NARRATIVE: CASE EVENT DATE: 20250101
